FAERS Safety Report 8229025-5 (Version None)
Quarter: 2012Q1

REPORT INFORMATION
  Report Type: 
  Country: None (occurrence: None)
  Receive Date: 20120322
  Receipt Date: 20120309
  Transmission Date: 20120608
  Serious: Yes (Other)
  Sender: FDA-Public Use
  Company Number: CA-ROCHE-1050477

PATIENT
  Sex: Female

DRUGS (1)
  1. LUCENTIS [Suspect]
     Indication: AGE-RELATED MACULAR DEGENERATION
     Route: 050
     Dates: start: 20081218

REACTIONS (6)
  - EYE INFECTION [None]
  - VITREOUS FLOATERS [None]
  - VISUAL IMPAIRMENT [None]
  - VISION BLURRED [None]
  - EYELID INFECTION [None]
  - VISUAL ACUITY REDUCED [None]
